FAERS Safety Report 12736137 (Version 3)
Quarter: 2016Q4

REPORT INFORMATION
  Report Type: Spontaneous
  Country: GB (occurrence: GB)
  Receive Date: 20160912
  Receipt Date: 20161026
  Transmission Date: 20170207
  Serious: Yes (Death, Hospitalization, Other)
  Sender: FDA-Public Use
  Company Number: GB-SA-2016SA164987

PATIENT
  Age: 43 Year
  Sex: Female
  Weight: 80 kg

DRUGS (16)
  1. ONDANSETRON [Concomitant]
     Active Substance: ONDANSETRON
     Dates: start: 20160822, end: 20160826
  2. LEMTRADA [Suspect]
     Active Substance: ALEMTUZUMAB
     Indication: MULTIPLE SCLEROSIS
     Route: 042
     Dates: start: 20160822, end: 20160826
  3. THYROXIN [Concomitant]
     Active Substance: LEVOTHYROXINE
  4. CETIRIZINE [Concomitant]
     Active Substance: CETIRIZINE HYDROCHLORIDE
     Dates: start: 20160822, end: 20160826
  5. DULOXETINE. [Concomitant]
     Active Substance: DULOXETINE
  6. OXYBUTYNIN [Concomitant]
     Active Substance: OXYBUTYNIN
  7. PREGABALIN. [Concomitant]
     Active Substance: PREGABALIN
  8. METHYLPREDNISOLONE. [Concomitant]
     Active Substance: METHYLPREDNISOLONE
     Dates: start: 20160822, end: 20160826
  9. IBUPROFEN. [Concomitant]
     Active Substance: IBUPROFEN
     Dates: start: 20160822, end: 20160826
  10. SALBUTAMOL [Concomitant]
     Active Substance: ALBUTEROL
     Dates: start: 20160822, end: 20160826
  11. DIMETHYL FUMARATE [Concomitant]
     Active Substance: DIMETHYL FUMARATE
  12. ACYCLOVIR. [Concomitant]
     Active Substance: ACYCLOVIR
     Dates: start: 20160822, end: 20160826
  13. PARACETAMOL [Concomitant]
     Active Substance: ACETAMINOPHEN
     Dates: start: 20160822, end: 20160826
  14. CHLORPHENAMINE [Concomitant]
     Active Substance: CHLORPHENIRAMINE MALEATE
  15. CYCLIZINE [Concomitant]
     Active Substance: CYCLIZINE
  16. COLECALCIFEROL [Concomitant]
     Active Substance: CHOLECALCIFEROL

REACTIONS (7)
  - Nausea [Unknown]
  - Listeria encephalitis [Fatal]
  - Encephalitis [Not Recovered/Not Resolved]
  - Brain oedema [Unknown]
  - Coma scale abnormal [Unknown]
  - Lethargy [Unknown]
  - Headache [Unknown]

NARRATIVE: CASE EVENT DATE: 20160901
